FAERS Safety Report 6515908-0 (Version None)
Quarter: 2009Q4

REPORT INFORMATION
  Report Type: 
  Country: None (occurrence: None)
  Receive Date: 20091223
  Receipt Date: 20091215
  Transmission Date: 20100525
  Serious: Yes (Hospitalization, Other)
  Sender: FDA-Public Use
  Company Number: US-AMGEN-US380359

PATIENT
  Sex: Male
  Weight: 112 kg

DRUGS (14)
  1. NPLATE [Suspect]
     Indication: IDIOPATHIC THROMBOCYTOPENIC PURPURA
     Dates: start: 20091105
  2. ELAVIL [Concomitant]
  3. CLONIDINE [Concomitant]
  4. DOCUSATE [Concomitant]
  5. IRON [Concomitant]
  6. LASIX [Concomitant]
  7. POTASSIUM CHLORIDE [Concomitant]
  8. PREVACID [Concomitant]
  9. MAGNESIUM [Concomitant]
  10. SOLU-MEDROL [Concomitant]
  11. CORTICOSTEROID NOS [Concomitant]
  12. TYLENOL (CAPLET) [Concomitant]
  13. BENADRYL [Concomitant]
  14. MORPHINE [Concomitant]

REACTIONS (2)
  - PLATELET COUNT DECREASED [None]
  - SEPSIS [None]
